FAERS Safety Report 8284108 (Version 3)
Quarter: 2013Q4

REPORT INFORMATION
  Report Type: Report from Study
  Country: MX (occurrence: MX)
  Receive Date: 20111212
  Receipt Date: 20131218
  Transmission Date: 20140711
  Serious: Yes (Other)
  Sender: FDA-Public Use
  Company Number: PHHY2011MX105782

PATIENT
  Age: 51 Year
  Sex: Female

DRUGS (4)
  1. DIOVAN [Suspect]
     Indication: HYPERTENSION
     Dosage: 1 DF(80 MG),DAILY
     Route: 048
  2. NORFLEX [Concomitant]
     Indication: JOINT SWELLING
     Dosage: 3 DF, UNK
     Dates: start: 201111
  3. ARTRENE [Concomitant]
     Indication: ARTHRALGIA
     Dosage: 1 DF,DAILY
     Dates: start: 201111
  4. REUMOPHAN ALKA [Concomitant]
     Indication: ARTHRALGIA
     Dosage: 2 TABLETS, DAILY
     Dates: start: 201111

REACTIONS (6)
  - Ligament rupture [Recovered/Resolved]
  - Hypokinesia [Recovered/Resolved]
  - Arthritis [Recovered/Resolved]
  - Local swelling [Recovered/Resolved]
  - Headache [Recovered/Resolved]
  - Blood pressure increased [Recovered/Resolved]
